FAERS Safety Report 23831083 (Version 1)
Quarter: 2024Q2

REPORT INFORMATION
  Report Type: Spontaneous
  Country: CH (occurrence: CH)
  Receive Date: 20240508
  Receipt Date: 20240508
  Transmission Date: 20240716
  Serious: Yes (Death, Other)
  Sender: FDA-Public Use
  Company Number: CH-SUN PHARMACEUTICAL INDUSTRIES LTD-2024R1-444834

PATIENT
  Age: 66 Year
  Sex: Male

DRUGS (2)
  1. ABIRATERONE [Suspect]
     Active Substance: ABIRATERONE
     Indication: Prostate cancer
     Dosage: 1 GRAM, QD
     Route: 065
     Dates: start: 202004
  2. PREDNISONE [Concomitant]
     Active Substance: PREDNISONE
     Indication: Prostate cancer
     Dosage: 5 MILLIGRAM, QD
     Route: 065

REACTIONS (3)
  - Hepatitis fulminant [Fatal]
  - Hepatocellular injury [Fatal]
  - Multiple organ dysfunction syndrome [Fatal]
